FAERS Safety Report 17298548 (Version 1)
Quarter: 2020Q1

REPORT INFORMATION
  Report Type: Spontaneous
  Country: ES (occurrence: ES)
  Receive Date: 20200122
  Receipt Date: 20200122
  Transmission Date: 20200409
  Serious: Yes (Hospitalization)
  Sender: FDA-Public Use
  Company Number: ES-TEVA-2020-ES-1171311

PATIENT
  Age: 84 Year
  Sex: Female

DRUGS (2)
  1. CANDESARTAN (2794A) [Suspect]
     Active Substance: CANDESARTAN
     Dates: start: 20190704, end: 20190925
  2. BISOPROLOL (2328A) [Suspect]
     Active Substance: BISOPROLOL
     Dates: start: 20160415, end: 20190925

REACTIONS (1)
  - Sinus bradycardia [Recovered/Resolved]

NARRATIVE: CASE EVENT DATE: 20190925
